FAERS Safety Report 15773369 (Version 1)
Quarter: 2018Q4

REPORT INFORMATION
  Report Type: Spontaneous
  Country: US (occurrence: US)
  Receive Date: 20181228
  Receipt Date: 20181228
  Transmission Date: 20190205
  Serious: Yes (Other)
  Sender: FDA-Public Use
  Company Number: US-COOPERSURGICAL, INC.-US-2018CPS034063

PATIENT

DRUGS (1)
  1. PARAGARD T 380A [Suspect]
     Active Substance: COPPER
     Indication: CONTRACEPTION
     Dosage: UNK
     Route: 015
     Dates: start: 20101221, end: 20181205

REACTIONS (8)
  - Device dislocation [Recovered/Resolved]
  - Rectal haemorrhage [Recovered/Resolved]
  - Pregnancy with contraceptive device [Recovered/Resolved]
  - Blood urine present [Recovered/Resolved]
  - Calculus bladder [Recovered/Resolved]
  - Drug ineffective [Unknown]
  - Sinusitis [Recovered/Resolved]
  - Urinary tract infection [Recovered/Resolved]

NARRATIVE: CASE EVENT DATE: 20110601
